FAERS Safety Report 7480584-X (Version None)
Quarter: 2011Q2

REPORT INFORMATION
  Report Type: 
  Country: None (occurrence: None)
  Receive Date: 20110516
  Receipt Date: 20110506
  Transmission Date: 20111010
  Serious: No
  Sender: FDA-Public Use
  Company Number: US-JNJFOC-20110505260

PATIENT
  Sex: Male

DRUGS (4)
  1. FENTANYL [Suspect]
     Indication: PAIN
     Route: 062
     Dates: end: 20110401
  2. FENTANYL [Suspect]
     Indication: BREAKTHROUGH PAIN
     Route: 062
     Dates: end: 20110401
  3. FENTANYL [Suspect]
     Route: 062
     Dates: end: 20110401
  4. FENTANYL [Suspect]
     Route: 062
     Dates: end: 20110401

REACTIONS (2)
  - INAPPROPRIATE SCHEDULE OF DRUG ADMINISTRATION [None]
  - DRUG PRESCRIBING ERROR [None]
